FAERS Safety Report 9127720 (Version 1)
Quarter: 2013Q1

REPORT INFORMATION
  Report Type: Spontaneous
  Country: US (occurrence: US)
  Receive Date: 20130122
  Receipt Date: 20130122
  Transmission Date: 20140127
  Serious: Yes (Disabling, Other)
  Sender: FDA-Public Use
  Company Number: US-UCBSA-074942

PATIENT
  Sex: Male

DRUGS (2)
  1. VIMPAT [Suspect]
     Indication: CONVULSION
     Dosage: STRENGTH: 200 MG
  2. KEPPRA XR [Suspect]
     Indication: CONVULSION
     Dosage: STRENGTH: 500 MG

REACTIONS (5)
  - Epilepsy [Unknown]
  - Affective disorder [Unknown]
  - Anxiety [Unknown]
  - Depression [Unknown]
  - Impaired work ability [Unknown]
